FAERS Safety Report 7836280-X (Version None)
Quarter: 2011Q4

REPORT INFORMATION
  Report Type: 
  Country: None (occurrence: None)
  Receive Date: 20111024
  Receipt Date: 20110208
  Transmission Date: 20120403
  Serious: No
  Sender: FDA-Public Use
  Company Number: US-ABBOTT-11P-163-0704802-00

PATIENT
  Sex: Female
  Weight: 55.388 kg

DRUGS (5)
  1. XANAX [Concomitant]
     Indication: PRODUCT USED FOR UNKNOWN INDICATION
     Dosage: FOUR TIMES PER DAY AS NEEDED
  2. LUPRON DEPOT [Suspect]
     Indication: ENDOMETRIOSIS
     Route: 030
     Dates: start: 20101201
  3. HYDROCHLOROTHIAZIDE [Concomitant]
     Indication: HYPERTENSION
  4. OXYCODONE HCL [Concomitant]
     Indication: PAIN
  5. LUPRON DEPOT [Suspect]
     Indication: OVARIAN ADHESION

REACTIONS (1)
  - HEADACHE [None]
